FAERS Safety Report 17635824 (Version 4)
Quarter: 2020Q3

REPORT INFORMATION
  Report Type: Spontaneous
  Country: US (occurrence: US)
  Receive Date: 20200406
  Receipt Date: 20200729
  Transmission Date: 20201102
  Serious: No
  Sender: FDA-Public Use
  Company Number: US-009507513-2003USA009664

PATIENT
  Age: 80 Year
  Sex: Female

DRUGS (2)
  1. REMERON [Suspect]
     Active Substance: MIRTAZAPINE
     Dosage: UNK
     Route: 048
  2. REMERON [Suspect]
     Active Substance: MIRTAZAPINE
     Dosage: UNK
     Route: 048

REACTIONS (6)
  - Suspected counterfeit product [Unknown]
  - Memory impairment [Unknown]
  - Counterfeit product administered [Unknown]
  - Fall [Unknown]
  - Agitation [Unknown]
  - Back pain [Unknown]

NARRATIVE: CASE EVENT DATE: 20200629
